FAERS Safety Report 4263859-7 (Version None)
Quarter: 2004Q1

REPORT INFORMATION
  Report Type: 
  Country: None (occurrence: None)
  Receive Date: 20040102
  Receipt Date: 20031219
  Transmission Date: 20041129
  Serious: Yes (Hospitalization)
  Sender: FDA-Public Use
  Company Number: 2002SE03094

PATIENT
  Age: 48 Year
  Sex: Female

DRUGS (2)
  1. ZOMIG [Suspect]
     Indication: MIGRAINE
     Dosage: 7.5 MG DAILY PO
     Route: 048
     Dates: start: 20020228, end: 20020228
  2. TONOPAN [Suspect]
     Indication: MIGRAINE
     Dates: end: 20020228

REACTIONS (4)
  - BLOOD IMMUNOGLOBULIN A INCREASED [None]
  - BLOOD IMMUNOGLOBULIN G INCREASED [None]
  - HEPATITIS CHOLESTATIC [None]
  - HEPATOTOXICITY [None]
